FAERS Safety Report 7237226-8 (Version None)
Quarter: 2011Q1

REPORT INFORMATION
  Report Type: 
  Country: None (occurrence: None)
  Receive Date: 20110121
  Receipt Date: 20110106
  Transmission Date: 20110831
  Serious: Yes (Hospitalization, Other)
  Sender: FDA-Public Use
  Company Number: US-CELGENEUS-163-21880-10102595

PATIENT
  Sex: Male
  Weight: 65.83 kg

DRUGS (43)
  1. FUROSEMIDE [Concomitant]
     Route: 065
  2. OMEPRAZOLE [Concomitant]
     Route: 048
  3. QUETIAPINE [Concomitant]
     Indication: SLEEP DISORDER
     Route: 048
     Dates: start: 20101014
  4. TAMSULOSIN [Concomitant]
     Indication: URINARY RETENTION
     Route: 048
     Dates: start: 20061011
  5. SIMVASTATIN [Concomitant]
     Route: 048
  6. LORTAB [Concomitant]
     Route: 048
  7. INDERAL [Concomitant]
     Route: 065
  8. AMLODIPINE [Concomitant]
     Route: 048
  9. FLUOXETINE [Concomitant]
     Indication: DEPRESSION
     Route: 048
     Dates: start: 20061001
  10. LOVAZA [Concomitant]
     Route: 048
  11. FOLIC ACID [Concomitant]
     Route: 065
  12. FLUOXETINE [Concomitant]
     Route: 048
  13. MULTI-VITAMINS [Concomitant]
     Route: 048
  14. OMEPRAZOLE [Concomitant]
     Route: 048
  15. ASCORBIC ACID [Concomitant]
     Route: 048
  16. K-DUR [Concomitant]
     Route: 065
  17. MACRODANTIN [Concomitant]
     Route: 048
  18. OXYGEN [Concomitant]
     Route: 055
     Dates: start: 20100901
  19. ASA [Concomitant]
     Route: 048
  20. DOCUSATE [Concomitant]
     Route: 048
  21. NITROFURANTOIN [Concomitant]
     Route: 048
  22. WHOLE BLOOD [Concomitant]
     Dosage: 2 UNITS
     Route: 051
  23. AREDIA [Concomitant]
     Route: 051
  24. SYNTHROID [Concomitant]
     Route: 065
  25. SEROQUEL [Concomitant]
     Route: 065
  26. HYDROCHLOROTHIAZIDE [Concomitant]
     Route: 048
  27. LISINOPRIL [Concomitant]
     Route: 048
  28. LORAZEPAM [Concomitant]
     Route: 048
  29. PRIMIDONE [Concomitant]
     Route: 048
  30. CELEXA [Concomitant]
     Route: 065
  31. PROTONIX [Concomitant]
     Route: 065
  32. SEROQUEL [Concomitant]
     Route: 065
  33. REVLIMID [Suspect]
     Indication: MULTIPLE MYELOMA
     Route: 048
     Dates: start: 20100909, end: 20100930
  34. HYDROCHLOROTHIAZIDE [Concomitant]
     Route: 048
  35. HYDROCODONE BITARTRATE + ACETAMINOPHEN [Concomitant]
     Indication: PAIN
     Route: 048
  36. POTASSIUM CHLORIDE [Concomitant]
     Route: 048
  37. PROPRANOLOL [Concomitant]
     Route: 048
  38. PAMIDRONATE DISODIUM [Concomitant]
     Route: 051
     Dates: start: 20101103
  39. ZOLPIDEM TARTRATE [Concomitant]
     Route: 048
  40. CALCIUM [Concomitant]
     Route: 048
  41. LUTEIN [Concomitant]
     Route: 048
  42. PROZAC [Concomitant]
     Route: 065
  43. ATIVAN [Concomitant]
     Route: 065

REACTIONS (13)
  - URINARY TRACT OBSTRUCTION [None]
  - DRUG INTOLERANCE [None]
  - CONSTIPATION [None]
  - SPINAL FRACTURE [None]
  - CARDIAC FAILURE CONGESTIVE [None]
  - RIB FRACTURE [None]
  - CONFUSIONAL STATE [None]
  - FALL [None]
  - ASTHENIA [None]
  - BLOOD POTASSIUM DECREASED [None]
  - PARAESTHESIA [None]
  - SUICIDAL IDEATION [None]
  - FATIGUE [None]
